FAERS Safety Report 9872292 (Version 17)
Quarter: 2017Q4

REPORT INFORMATION
  Report Type: Report from Study
  Country: CA (occurrence: CA)
  Receive Date: 20140205
  Receipt Date: 20171226
  Transmission Date: 20180321
  Serious: Yes (Hospitalization, Other)
  Sender: FDA-Public Use
  Company Number: PHHY2013CA026416

PATIENT
  Age: 65 Year
  Sex: Male

DRUGS (5)
  1. SANDOSTATIN LAR DEPOT [Suspect]
     Active Substance: OCTREOTIDE ACETATE
     Indication: CARCINOID TUMOUR
     Dosage: 30 MG, QMO (EVERY 4 WEEKS)
     Route: 030
     Dates: start: 20120817
  2. SANDOSTATIN LAR DEPOT [Suspect]
     Active Substance: OCTREOTIDE ACETATE
     Dosage: 30 MG, QMO (EVERY 4 WEEKS)
     Route: 030
  3. ATENOLOL. [Concomitant]
     Active Substance: ATENOLOL
     Indication: PRODUCT USED FOR UNKNOWN INDICATION
     Dosage: UNK
     Route: 065
  4. SANDOSTATIN LAR DEPOT [Suspect]
     Active Substance: OCTREOTIDE ACETATE
     Indication: PROSTATE CANCER
     Dosage: 20 MG, QMO (EVERY 4 WEEKS)
     Route: 030
  5. SANDOSTATIN LAR DEPOT [Suspect]
     Active Substance: OCTREOTIDE ACETATE
     Dosage: 30 MG, QMO (EVERY 4 WEEKS)
     Route: 030
     Dates: start: 20161118, end: 20171117

REACTIONS (11)
  - Urinary tract infection [Recovered/Resolved]
  - Body temperature decreased [Unknown]
  - Injection site mass [Unknown]
  - Injection site pain [Unknown]
  - Injection site discomfort [Unknown]
  - Diarrhoea [Not Recovered/Not Resolved]
  - Product use in unapproved indication [Unknown]
  - Hypertension [Unknown]
  - Injection site bruising [Unknown]
  - Blood pressure systolic increased [Unknown]
  - Heart rate decreased [Unknown]

NARRATIVE: CASE EVENT DATE: 20130312
